FAERS Safety Report 4624051-7 (Version None)
Quarter: 2005Q1

REPORT INFORMATION
  Report Type: 
  Country: None (occurrence: None)
  Receive Date: 20050329
  Receipt Date: 20050314
  Transmission Date: 20050727
  Serious: Yes (Hospitalization, Other)
  Sender: FDA-Public Use
  Company Number: 2005BI005509

PATIENT
  Age: 49 Year
  Sex: Female

DRUGS (2)
  1. AVONEX [Suspect]
     Indication: MULTIPLE SCLEROSIS
     Dosage: 30 UG, QW; IM, 30 UG, QW; IM
     Route: 030
     Dates: start: 20041101, end: 20050301
  2. AVONEX [Suspect]
     Indication: MULTIPLE SCLEROSIS
     Dosage: 30 UG, QW; IM, 30 UG, QW; IM
     Route: 030
     Dates: start: 20050301

REACTIONS (3)
  - ALOPECIA [None]
  - BREAST CANCER FEMALE [None]
  - INFLUENZA LIKE ILLNESS [None]
